FAERS Safety Report 16911223 (Version 1)
Quarter: 2019Q4

REPORT INFORMATION
  Report Type: Spontaneous
  Country: US (occurrence: US)
  Receive Date: 20190821
  Receipt Date: 20190821
  Transmission Date: 20200122
  Serious: Yes (Other)
  Sender: FDA-Public Use
  Company Number: None

PATIENT
  Age: 64 Year
  Sex: Female

DRUGS (1)
  1. PLUS CBD OIL HEMP DROPS PEPPERMINT EXTRA STRENGTH [Suspect]
     Active Substance: CANNABIDIOL\HERBALS
     Indication: DRUG THERAPY ENHANCEMENT

REACTIONS (8)
  - Pharyngeal swelling [None]
  - Hypersensitivity [None]
  - Product container issue [None]
  - Product physical consistency issue [None]
  - Dyspnoea [None]
  - Throat tightness [None]
  - Product colour issue [None]
  - Tongue discomfort [None]
